FAERS Safety Report 6615806-8 (Version None)
Quarter: 2010Q1

REPORT INFORMATION
  Report Type: 
  Country: None (occurrence: None)
  Receive Date: 20100305
  Receipt Date: 20100223
  Transmission Date: 20100710
  Serious: Yes (Hospitalization)
  Sender: FDA-Public Use
  Company Number: KR-JNJFOC-20100210823

PATIENT
  Age: 11 Year
  Sex: Male

DRUGS (5)
  1. TYLENOL-500 [Suspect]
     Route: 048
  2. TYLENOL-500 [Suspect]
     Indication: JOINT SPRAIN
     Route: 048
  3. LEODASE [Suspect]
     Indication: JOINT SPRAIN
     Dosage: .5T 3 TIMES A DAY
     Route: 048
  4. ALIBENDOL [Suspect]
     Indication: JOINT SPRAIN
     Dosage: .5 T 3 TIMES A DAY
     Route: 048
  5. MELILOT EXTRACT [Concomitant]
     Indication: JOINT SPRAIN
     Route: 050

REACTIONS (2)
  - COMA [None]
  - CONVULSION [None]
